FAERS Safety Report 17362417 (Version 1)
Quarter: 2020Q1

REPORT INFORMATION
  Report Type: Spontaneous
  Country: US (occurrence: US)
  Receive Date: 20200203
  Receipt Date: 20200203
  Transmission Date: 20200409
  Serious: No
  Sender: FDA-Public Use
  Company Number: US-FAGRON STERILE SERVICES-2079750

PATIENT
  Age: 67 Year
  Sex: Female
  Weight: 99.09 kg

DRUGS (1)
  1. TROPICAMIDE 1%/CYCLOPENTOLATE 1%/PHENYLEPHRINE 2.5%/KETOROLAC 0.5% OPH [Suspect]
     Active Substance: CYCLOPENTOLATE\KETOROLAC\PHENYLEPHRINE\TROPICAMIDE
     Dates: start: 20200127, end: 20200127

REACTIONS (1)
  - Drug ineffective [Recovered/Resolved]

NARRATIVE: CASE EVENT DATE: 20200127
